FAERS Safety Report 6348069-1 (Version None)
Quarter: 2009Q3

REPORT INFORMATION
  Report Type: 
  Country: None (occurrence: None)
  Receive Date: 20090908
  Receipt Date: 20090824
  Transmission Date: 20100115
  Serious: Yes (Hospitalization)
  Sender: FDA-Public Use
  Company Number: 8049792

PATIENT
  Sex: Male

DRUGS (3)
  1. KEPPRA [Suspect]
     Dosage: 4000 MG /D
  2. LACOSAMIDE [Suspect]
     Dosage: 300 MG /D
  3. LACOSAMIDE [Suspect]
     Dosage: 400 MG /D

REACTIONS (1)
  - GRAND MAL CONVULSION [None]
